FAERS Safety Report 12131941 (Version 10)
Quarter: 2016Q3

REPORT INFORMATION
  Report Type: Spontaneous
  Country: PL (occurrence: PL)
  Receive Date: 20160301
  Receipt Date: 20160725
  Transmission Date: 20161109
  Serious: Yes (Death, Life-Threatening, Hospitalization, Disabling, Other)
  Sender: FDA-Public Use
  Company Number: PL-TAKEDA-2016MPI001374

PATIENT
  Age: 79 Year
  Sex: Male
  Weight: 88 kg

DRUGS (18)
  1. MELPHALAN [Suspect]
     Active Substance: MELPHALAN
     Indication: PLASMA CELL MYELOMA
     Dosage: 18 MG, UNK
     Route: 048
     Dates: start: 20160209, end: 20160212
  2. ACARD [Concomitant]
     Active Substance: ASPIRIN
     Indication: PERIPHERAL ARTERY ANEURYSM
     Dosage: 75 MG, UNK
     Route: 048
     Dates: end: 20160226
  3. MILURIT [Concomitant]
     Active Substance: ALLOPURINOL
     Indication: PROPHYLAXIS
     Dosage: 300 MG, UNK
     Route: 048
     Dates: start: 20160209, end: 20160226
  4. GASEC [Concomitant]
     Indication: GASTRITIS PROPHYLAXIS
     Dosage: 20 MG, UNK
     Route: 048
     Dates: start: 20160209, end: 20160226
  5. PARACETAMOL [Concomitant]
     Active Substance: ACETAMINOPHEN
     Indication: BACK PAIN
     Dosage: 325 MG, QID
     Route: 048
     Dates: start: 20160202, end: 20160212
  6. HEVIRAN                            /00587301/ [Concomitant]
     Indication: PROPHYLAXIS
     Dosage: 800 MG, BID
     Route: 048
     Dates: start: 20160209, end: 20160226
  7. BISEPTOL [Concomitant]
     Active Substance: SULFAMETHOXAZOLE\TRIMETHOPRIM
     Indication: ANTIFUNGAL PROPHYLAXIS
     Dosage: 960 MG, BID
     Route: 048
     Dates: start: 20160202, end: 20160212
  8. VELCADE [Suspect]
     Active Substance: BORTEZOMIB
     Indication: PLASMA CELL MYELOMA
     Dosage: 2.6 MG, 2/WEEK
     Route: 058
     Dates: start: 20160209, end: 20160219
  9. PREDNISONE. [Suspect]
     Active Substance: PREDNISONE
     Indication: PLASMA CELL MYELOMA
     Dosage: 120 MG, UNK
     Route: 048
     Dates: start: 20160210, end: 20160212
  10. METOPROLOL SUCCINATE. [Concomitant]
     Active Substance: METOPROLOL SUCCINATE
     Indication: HYPERTENSION
     Dosage: 50 MG, UNK
     Route: 048
     Dates: start: 1995, end: 20160226
  11. ZOLEDRONIC ACID [Concomitant]
     Active Substance: ZOLEDRONIC ACID
     Indication: OSTEOPOROSIS PROPHYLAXIS
     Dosage: 4 MG, UNK
     Route: 042
     Dates: start: 20160204, end: 20160226
  12. PRINIVIL [Concomitant]
     Active Substance: LISINOPRIL
     Indication: HYPERTENSION
     Dosage: 10 MG, UNK
     Route: 048
     Dates: start: 1995, end: 20160216
  13. PARACETAMOL [Concomitant]
     Active Substance: ACETAMINOPHEN
     Dosage: 500 MG, QID
     Route: 048
     Dates: start: 20160212, end: 20160226
  14. DUROGESIC [Concomitant]
     Active Substance: FENTANYL
     Indication: BACK PAIN
     Dosage: 25 MG, UNK
     Route: 061
     Dates: start: 20160212, end: 20160226
  15. RUTINOSCORBIN [Concomitant]
     Indication: PROPHYLAXIS
     Dosage: 125 MG, UNK
     Route: 048
     Dates: end: 20160226
  16. DARATUMUMAB [Suspect]
     Active Substance: DARATUMUMAB
     Indication: PLASMA CELL MYELOMA
     Dosage: 1408 MG, 1/WEEK
     Route: 042
     Dates: start: 20160209, end: 20160216
  17. ACARD [Concomitant]
     Active Substance: ASPIRIN
     Indication: AORTIC ANEURYSM
  18. TRAMADOL. [Concomitant]
     Active Substance: TRAMADOL
     Indication: BACK PAIN
     Dosage: 37.5 MG, QID
     Route: 048
     Dates: start: 20160202, end: 20160212

REACTIONS (2)
  - Hypovolaemic shock [Not Recovered/Not Resolved]
  - Acute myocardial infarction [Fatal]

NARRATIVE: CASE EVENT DATE: 20160220
